FAERS Safety Report 5127119-4 (Version None)
Quarter: 2006Q4

REPORT INFORMATION
  Report Type: 
  Country: None (occurrence: None)
  Receive Date: 20061013
  Receipt Date: 20061002
  Transmission Date: 20070319
  Serious: Yes (Other)
  Sender: FDA-Public Use
  Company Number: PHBS2006DE15412

PATIENT
  Age: 81 Year
  Sex: Female

DRUGS (2)
  1. ZOMETA [Suspect]
     Indication: BREAST CANCER
     Dates: start: 20021001, end: 20040801
  2. BONDRONAT [Suspect]
     Indication: BREAST CANCER
     Dates: start: 20040801

REACTIONS (2)
  - ENDODONTIC PROCEDURE [None]
  - OSTEONECROSIS [None]
